FAERS Safety Report 11719420 (Version 1)
Quarter: 2015Q4

REPORT INFORMATION
  Report Type: Spontaneous
  Country: US (occurrence: None)
  Receive Date: 20151109
  Receipt Date: 20151109
  Transmission Date: 20160304
  Serious: Yes (Disabling)
  Sender: FDA-Public Use
  Company Number: None

PATIENT
  Age: 61 Year
  Sex: Male
  Weight: 77.11 kg

DRUGS (9)
  1. BABY ASPIRIN [Concomitant]
     Active Substance: ASPIRIN
  2. AMIODARONE 100 MG ZYDUS PHAMACUTIAL [Suspect]
     Active Substance: AMIODARONE
     Indication: ARRHYTHMIA
     Route: 048
     Dates: start: 20120701, end: 20150701
  3. MEXILITINE [Concomitant]
  4. PAXIL [Concomitant]
     Active Substance: PAROXETINE HYDROCHLORIDE
  5. ATROVASTATIN [Concomitant]
     Active Substance: ATORVASTATIN CALCIUM
  6. ST. JUDE ICD [Concomitant]
  7. ST. JUDE MERLIN TRANSMITTER [Concomitant]
  8. CARVIDILOL [Concomitant]
  9. LASIX [Concomitant]
     Active Substance: FUROSEMIDE

REACTIONS (5)
  - Cardiac failure congestive [None]
  - Pulmonary fibrosis [None]
  - Tremor [None]
  - Hypersensitivity [None]
  - Hyperthyroidism [None]

NARRATIVE: CASE EVENT DATE: 20150701
